FAERS Safety Report 25434093 (Version 1)
Quarter: 2025Q2

REPORT INFORMATION
  Report Type: Spontaneous
  Country: US (occurrence: US)
  Receive Date: 20250613
  Receipt Date: 20250613
  Transmission Date: 20250716
  Serious: Yes (Hospitalization, Other)
  Sender: AMGEN
  Company Number: US-AMGEN-USASP2025109238

PATIENT
  Age: 65 Year
  Sex: Male

DRUGS (4)
  1. PREDNISONE [Suspect]
     Active Substance: PREDNISONE
     Indication: Cardiac sarcoidosis
     Route: 065
  2. INFLIXIMAB [Suspect]
     Active Substance: INFLIXIMAB
     Indication: Cardiac sarcoidosis
     Route: 065
  3. MEXILETINE [Concomitant]
     Active Substance: MEXILETINE
     Route: 065
  4. QUINIDINE [Concomitant]
     Active Substance: QUINIDINE

REACTIONS (2)
  - Cardiac sarcoidosis [Unknown]
  - Off label use [Unknown]
